FAERS Safety Report 7484100-8 (Version None)
Quarter: 2011Q2

REPORT INFORMATION
  Report Type: 
  Country: None (occurrence: None)
  Receive Date: 20110517
  Receipt Date: 20090731
  Transmission Date: 20111010
  Serious: Yes (Death, Hospitalization, Other)
  Sender: FDA-Public Use
  Company Number: US-BAYER-200928743NA

PATIENT
  Age: 73 Year
  Sex: Male
  Weight: 78.912 kg

DRUGS (22)
  1. BUMEX [Concomitant]
     Dosage: GIVE 2MG AFTER GIVING BLOOD
     Route: 042
     Dates: start: 20051015, end: 20051015
  2. HEPARIN [Concomitant]
     Dosage: 60,0000 UNITS
     Route: 042
     Dates: start: 20051015, end: 20051015
  3. CORDARONE [Concomitant]
     Dosage: DRIP AT 1MG PER MINUTE FOR 6 HOURS
     Route: 042
     Dates: start: 20051015, end: 20051015
  4. METOPROLOL SUCCINATE [Concomitant]
     Dosage: 25 MG, BID
     Route: 048
     Dates: start: 20051015, end: 20051102
  5. NITROGLYCERIN [Concomitant]
     Dosage: UNK
     Route: 042
     Dates: start: 20051015
  6. DEMADEX [Concomitant]
     Dosage: 5MG AS NEEDED IF URINE OUTPUT LESS THAN 30ML/HOUR
     Route: 042
     Dates: start: 20051015
  7. ACETYLSALICYLIC ACID SRT [Concomitant]
     Dosage: 81 MG, QD
     Route: 048
     Dates: end: 20051011
  8. PLAVIX [Concomitant]
     Dosage: UNK
     Route: 048
     Dates: end: 20051013
  9. HUMULIN R [Concomitant]
     Dosage: ACCUCHECKS EVERY 4 HOURS EITH AMOUNT ACCORDING TO SLIDING SCALE
     Route: 058
     Dates: start: 20051017, end: 20051102
  10. VASOPRESSIN [Concomitant]
     Dosage: TITRATE TO KEEP SYSTOLIC BLOOD PRESSURE 90-100
     Route: 042
     Dates: start: 20051015
  11. PROPRANOLOL HYDROCHLORIDE [Concomitant]
     Dosage: 0.5MG PRN FOR HR } 130
     Route: 042
     Dates: start: 20051022, end: 20051102
  12. LASIX [Concomitant]
     Dosage: 40 MG, QD
     Route: 042
     Dates: start: 20051015, end: 20051015
  13. AMICAR [Concomitant]
     Dosage: 2 INJECTIONS OF 5000MG/20ML
     Route: 042
     Dates: start: 20051015, end: 20051015
  14. PRIMACOR [Concomitant]
     Dosage: 0.5MCG PER KILOGRAM PER MINUTE
     Route: 042
     Dates: start: 20051015, end: 20051022
  15. FENTANYL [Concomitant]
     Dosage: 20ML VIAL
     Route: 042
     Dates: start: 20051015, end: 20051015
  16. ZETIA [Concomitant]
     Dosage: 10MG EVERY OTHER DAY
     Route: 048
  17. PROTONIX [Concomitant]
     Dosage: 40 MG, QD
     Route: 048
  18. ALBUMIN (HUMAN) [Concomitant]
     Dosage: 50MG/250ML
     Route: 042
     Dates: start: 20051015
  19. TRASYLOL [Suspect]
     Indication: CORONARY ARTERY BYPASS
     Route: 042
     Dates: start: 20051015
  20. HEPARIN [Concomitant]
     Dosage: UNK
     Route: 042
     Dates: start: 20051012, end: 20051022
  21. ZOCOR [Concomitant]
     Dosage: 40 MG, QD
     Route: 048
  22. VANCOMYCIN [Concomitant]
     Dosage: MULTIPLE DOSES
     Route: 042
     Dates: start: 20051016, end: 20051026

REACTIONS (7)
  - UNEVALUABLE EVENT [None]
  - RENAL INJURY [None]
  - INJURY [None]
  - PAIN [None]
  - DEATH [None]
  - RENAL FAILURE ACUTE [None]
  - RENAL FAILURE [None]
